FAERS Safety Report 16773189 (Version 1)
Quarter: 2019Q3

REPORT INFORMATION
  Report Type: Spontaneous
  Country: FR (occurrence: FR)
  Receive Date: 20190904
  Receipt Date: 20190904
  Transmission Date: 20191005
  Serious: Yes (Hospitalization)
  Sender: FDA-Public Use
  Company Number: FR-PFIZER INC-FR-WYE-G05989510

PATIENT
  Age: 29 Year
  Sex: Female

DRUGS (1)
  1. ADEPAL [Suspect]
     Active Substance: ETHINYL ESTRADIOL\LEVONORGESTREL
     Indication: ORAL CONTRACEPTION
     Dosage: 1 DF, 1X/DAY 21 DAYS ON/ 7 DAYS OFFS
     Route: 048
     Dates: start: 2000, end: 2008

REACTIONS (1)
  - Meningioma [Recovered/Resolved]

NARRATIVE: CASE EVENT DATE: 200410
